FAERS Safety Report 9538440 (Version 1)
Quarter: 2013Q2

REPORT INFORMATION
  Report Type: Spontaneous
  Country: US (occurrence: None)
  Receive Date: 20130507
  Receipt Date: 20130507
  Transmission Date: 20140414
  Serious: Yes (Other)
  Sender: FDA-Public Use
  Company Number: PHEH2013US002710

PATIENT
  Sex: 0

DRUGS (3)
  1. AFINITOR [Suspect]
     Dates: start: 201211
  2. REMICADE ( INFLIXIMAB) [Concomitant]
  3. RADIATION THERAPY ( NO INGREDIENTS/SUBSTANCES) [Concomitant]

REACTIONS (1)
  - Generalised oedema [None]
